FAERS Safety Report 22094030 (Version 1)
Quarter: 2023Q1

REPORT INFORMATION
  Report Type: Report from Study
  Country: US (occurrence: US)
  Receive Date: 20230314
  Receipt Date: 20230314
  Transmission Date: 20230418
  Serious: Yes (Other)
  Sender: FDA-Public Use
  Company Number: US-002147023-NVSC2023US052960

PATIENT
  Sex: Female

DRUGS (3)
  1. ENTRESTO [Suspect]
     Active Substance: SACUBITRIL\VALSARTAN
     Indication: Cardiac failure
     Dosage: UNK UNK, BID, 24/26MG
     Route: 048
     Dates: start: 2021
  2. CARVEDILOL [Suspect]
     Active Substance: CARVEDILOL
     Indication: Cardiac failure
     Dosage: UNK
     Route: 065
     Dates: start: 2021
  3. RANOLAZINE [Suspect]
     Active Substance: RANOLAZINE
     Indication: Cardiac failure
     Dosage: UNK
     Route: 065

REACTIONS (6)
  - Cardiomyopathy [Unknown]
  - Pericardial effusion [Unknown]
  - Arthritis [Unknown]
  - Blood pressure decreased [Unknown]
  - Memory impairment [Unknown]
  - Cough [Unknown]
